FAERS Safety Report 7777010-X (Version None)
Quarter: 2011Q3

REPORT INFORMATION
  Report Type: 
  Country: None (occurrence: None)
  Receive Date: 20110926
  Receipt Date: 20110926
  Transmission Date: 20111222
  Serious: Yes (Hospitalization)
  Sender: FDA-Public Use
  Company Number: None

PATIENT
  Sex: Female
  Weight: 82.6 kg

DRUGS (2)
  1. XGEVA [Suspect]
     Indication: METASTASES TO BONE
     Dosage: 120MG
     Route: 058
     Dates: start: 20110822, end: 20110822
  2. XGEVA [Suspect]
     Indication: BREAST CANCER METASTATIC
     Dosage: 120MG
     Route: 058
     Dates: start: 20110822, end: 20110822

REACTIONS (1)
  - HYPERCALCAEMIA [None]
